FAERS Safety Report 24896122 (Version 1)
Quarter: 2025Q1

REPORT INFORMATION
  Report Type: Spontaneous
  Country: US (occurrence: US)
  Receive Date: 20250128
  Receipt Date: 20250128
  Transmission Date: 20250408
  Serious: Yes (Other)
  Sender: PURDUE
  Company Number: US-PURDUE PHARMA-USA-2025-0314907

PATIENT

DRUGS (3)
  1. OXYCONTIN [Suspect]
     Active Substance: OXYCODONE HYDROCHLORIDE
     Indication: Breakthrough pain
     Dosage: 200 MILLIGRAM, DAILY (80MG+20MG)
     Route: 048
     Dates: start: 2006
  2. PERCOCET [Suspect]
     Active Substance: ACETAMINOPHEN\OXYCODONE HYDROCHLORIDE
     Indication: Endometriosis
     Route: 065
     Dates: start: 1999
  3. VICODIN [Suspect]
     Active Substance: ACETAMINOPHEN\HYDROCODONE BITARTRATE
     Indication: Breakthrough pain
     Dosage: 10 MILLIGRAM, Q4H
     Route: 065

REACTIONS (11)
  - Cardiac disorder [Unknown]
  - Drug dependence [Not Recovered/Not Resolved]
  - Bone density abnormal [Unknown]
  - Impaired quality of life [Unknown]
  - Mental disorder [Unknown]
  - Illness [Unknown]
  - Emotional distress [Unknown]
  - Physical disability [Unknown]
  - Gastrointestinal disorder [Unknown]
  - Depression [Unknown]
  - Inadequate analgesia [Unknown]
